FAERS Safety Report 5389835-9 (Version None)
Quarter: 2007Q3

REPORT INFORMATION
  Report Type: 
  Country: None (occurrence: None)
  Receive Date: 20070718
  Receipt Date: 20070711
  Transmission Date: 20080115
  Serious: Yes (Hospitalization)
  Sender: FDA-Public Use
  Company Number: PHBS2007NL10612

PATIENT
  Sex: Male

DRUGS (6)
  1. EXJADE [Suspect]
     Indication: IRON OVERLOAD
     Dosage: UNK, BID
     Route: 048
  2. MORFINE [Concomitant]
     Dosage: UNK
  3. OMNIC [Concomitant]
     Dosage: UNK
  4. DOXYCYCLINE [Concomitant]
     Dosage: UNK
     Dates: start: 20060309
  5. TEMAZEPAM [Concomitant]
     Dosage: UNK
     Dates: start: 20061223
  6. TRISPORAL [Concomitant]
     Dosage: UNK

REACTIONS (2)
  - NEPHROLITHIASIS [None]
  - RENAL STONE REMOVAL [None]
